FAERS Safety Report 4742792-8 (Version None)
Quarter: 2005Q3

REPORT INFORMATION
  Report Type: 
  Country: None (occurrence: None)
  Receive Date: 20050811
  Receipt Date: 20050805
  Transmission Date: 20060218
  Serious: Yes (Hospitalization)
  Sender: FDA-Public Use
  Company Number: PHBS2005AT11460

PATIENT
  Age: 54 Year
  Sex: Male

DRUGS (5)
  1. CYCLOSPORINE [Suspect]
     Indication: LIVER TRANSPLANT
     Route: 065
  2. MYCOPHENOLATE MOFETIL [Suspect]
     Indication: LIVER TRANSPLANT
     Route: 065
  3. AZATHIOPRINE [Suspect]
     Indication: LIVER TRANSPLANT
     Route: 065
  4. SIROLIMUS [Suspect]
     Indication: LIVER TRANSPLANT
     Route: 065
  5. SIMULECT [Suspect]
     Indication: LIVER TRANSPLANT
     Route: 065

REACTIONS (10)
  - DEHYDRATION [None]
  - DIARRHOEA [None]
  - ELECTROLYTE IMBALANCE [None]
  - GASTROENTERITIS ROTAVIRUS [None]
  - HAEMODYNAMIC INSTABILITY [None]
  - PLEURAL EFFUSION [None]
  - PSEUDOMONAS INFECTION [None]
  - RENAL IMPAIRMENT [None]
  - STAPHYLOCOCCAL BACTERAEMIA [None]
  - WOUND DEHISCENCE [None]
